FAERS Safety Report 19919775 (Version 1)
Quarter: 2021Q4

REPORT INFORMATION
  Report Type: Spontaneous
  Country: US (occurrence: US)
  Receive Date: 20211005
  Receipt Date: 20211005
  Transmission Date: 20220303
  Serious: Yes (Other)
  Sender: FDA-Public Use
  Company Number: US-PFIZER INC-2017458780

PATIENT
  Age: 59 Year
  Sex: Male
  Weight: 51.43 kg

DRUGS (2)
  1. XELJANZ [Suspect]
     Active Substance: TOFACITINIB CITRATE
     Indication: Colitis ulcerative
     Dosage: 5 MG, UNK [QTY 120 / DAY SUPPLY 30]
  2. XELJANZ [Suspect]
     Active Substance: TOFACITINIB CITRATE
     Indication: Crohn^s disease
     Dosage: 10 MG, 2X/DAY (TWICE DAILY)
     Route: 048
     Dates: start: 201908, end: 2021

REACTIONS (3)
  - Herpes zoster [Not Recovered/Not Resolved]
  - Nerve injury [Not Recovered/Not Resolved]
  - Prescribed overdose [Unknown]

NARRATIVE: CASE EVENT DATE: 20210101
